FAERS Safety Report 6247182-7 (Version None)
Quarter: 2009Q2

REPORT INFORMATION
  Report Type: 
  Country: None (occurrence: None)
  Receive Date: 20090626
  Receipt Date: 20090616
  Transmission Date: 20091009
  Serious: Yes (Other)
  Sender: FDA-Public Use
  Company Number: GB-ABBOTT-09P-167-0567390-00

PATIENT
  Sex: Male
  Weight: 68 kg

DRUGS (7)
  1. HUMIRA [Suspect]
     Indication: RHEUMATOID ARTHRITIS
     Route: 058
     Dates: start: 20060626, end: 20061123
  2. PREDNISOLONE [Concomitant]
     Indication: DRUG USE FOR UNKNOWN INDICATION
  3. CALCICHEW [Concomitant]
     Indication: DRUG USE FOR UNKNOWN INDICATION
  4. DIHYDROCODEINE BITARTRATE INJ [Concomitant]
     Indication: DRUG USE FOR UNKNOWN INDICATION
  5. FOSAMAX [Concomitant]
     Indication: DRUG USE FOR UNKNOWN INDICATION
  6. LANSOPRAZOLE [Concomitant]
     Indication: DRUG USE FOR UNKNOWN INDICATION
  7. MELOXICAM [Concomitant]
     Indication: DRUG USE FOR UNKNOWN INDICATION

REACTIONS (2)
  - ACTINIC KERATOSIS [None]
  - BASAL CELL CARCINOMA [None]
